FAERS Safety Report 6929121-6 (Version None)
Quarter: 2010Q3

REPORT INFORMATION
  Report Type: 
  Country: None (occurrence: None)
  Receive Date: 20100812
  Receipt Date: 20100804
  Transmission Date: 20110219
  Serious: Yes (Hospitalization)
  Sender: FDA-Public Use
  Company Number: 2010JP002512

PATIENT
  Sex: Male

DRUGS (4)
  1. VESICARE [Suspect]
     Indication: HYPERTONIC BLADDER
     Dosage: 10 MG, ORAL
     Route: 048
     Dates: start: 20090325, end: 20100330
  2. GLEEVEC [Suspect]
     Indication: GASTROINTESTINAL STROMAL TUMOUR
     Dosage: 800 MG, ORAL; 600 MG, ORAL
     Route: 048
     Dates: start: 20100304, end: 20100411
  3. GLEEVEC [Suspect]
     Indication: GASTROINTESTINAL STROMAL TUMOUR
     Dosage: 800 MG, ORAL; 600 MG, ORAL
     Route: 048
     Dates: start: 20100412
  4. HARNAL (TAMSULOSIN) ORODISPERSIBLE CR TABLET [Concomitant]

REACTIONS (1)
  - BLOOD CHOLINESTERASE DECREASED [None]
